FAERS Safety Report 9995962 (Version 1)
Quarter: 2014Q1

REPORT INFORMATION
  Report Type: Spontaneous
  Country: SG (occurrence: SG)
  Receive Date: 20140311
  Receipt Date: 20140311
  Transmission Date: 20141002
  Serious: Yes (Death)
  Sender: FDA-Public Use
  Company Number: SG-UCBSA-114332

PATIENT
  Age: 10 Year
  Sex: Male

DRUGS (3)
  1. OMEPRAZOLE [Suspect]
     Dosage: UNKNOWN DOSE
     Route: 042
     Dates: start: 20130102, end: 20130116
  2. CEFTAZIDIME SODIUM [Suspect]
     Dosage: UNKNOWN DOSE
     Route: 042
     Dates: start: 20130102, end: 201301
  3. CLOXACILLIN SODIUM [Suspect]
     Dosage: UNKNOWN DOSE
     Route: 042
     Dates: start: 20130104, end: 20130114

REACTIONS (1)
  - Stevens-Johnson syndrome [Fatal]
